FAERS Safety Report 7829410-7 (Version None)
Quarter: 2011Q4

REPORT INFORMATION
  Report Type: 
  Country: None (occurrence: None)
  Receive Date: 20111020
  Receipt Date: 20111014
  Transmission Date: 20120403
  Serious: Yes (Hospitalization)
  Sender: FDA-Public Use
  Company Number: CH-BAYER-2011-098987

PATIENT
  Age: 68 Year
  Sex: Female

DRUGS (7)
  1. ASPIRIN [Suspect]
     Dosage: 100 MG, QD
     Route: 048
  2. RANITIDINE HCL [Concomitant]
     Dosage: UNK
     Route: 048
     Dates: end: 20110401
  3. TILUR [Suspect]
     Indication: OSTEOARTHRITIS
     Dosage: UNK
     Route: 048
     Dates: end: 20110413
  4. LEVOTHYROXINE SODIUM [Concomitant]
     Route: 048
  5. LORAZEPAM [Concomitant]
  6. SIMVASTATIN [Concomitant]
  7. MODURETIC 5-50 [Concomitant]
     Route: 048

REACTIONS (3)
  - NO ADVERSE EVENT [None]
  - DYSPEPSIA [None]
  - VOMITING [None]
